FAERS Safety Report 4288957-3 (Version None)
Quarter: 2004Q1

REPORT INFORMATION
  Report Type: 
  Country: None (occurrence: None)
  Receive Date: 20040205
  Receipt Date: 20021220
  Transmission Date: 20041129
  Serious: Yes (Hospitalization)
  Sender: FDA-Public Use
  Company Number: ETHYOL-02219

PATIENT
  Sex: Male

DRUGS (1)
  1. ETHYOL [Suspect]
     Dates: start: 20021212

REACTIONS (1)
  - ANAPHYLACTIC REACTION [None]
